FAERS Safety Report 6317118-9 (Version None)
Quarter: 2009Q3

REPORT INFORMATION
  Report Type: 
  Country: None (occurrence: None)
  Receive Date: 20090820
  Receipt Date: 20090817
  Transmission Date: 20100115
  Serious: Yes (Other)
  Sender: FDA-Public Use
  Company Number: DE-GILEAD-2009-0023252

PATIENT
  Sex: Male
  Weight: 75 kg

DRUGS (6)
  1. HEPSERA [Suspect]
     Indication: HEPATITIS B
     Route: 048
     Dates: start: 20070503, end: 20080707
  2. HEPSERA [Suspect]
     Indication: DRUG RESISTANCE
  3. HEPSERA [Suspect]
     Indication: TRANSAMINASES INCREASED
  4. VIREAD [Suspect]
     Indication: HEPATITIS B
     Route: 048
     Dates: start: 20080623
  5. ZEFFIX [Concomitant]
     Indication: HEPATITIS B
     Route: 048
     Dates: start: 20051201
  6. ZEFFIX [Concomitant]
     Indication: VIRAL LOAD INCREASED

REACTIONS (6)
  - BACK PAIN [None]
  - BLOOD CREATINE PHOSPHOKINASE INCREASED [None]
  - BLOOD CREATINE PHOSPHOKINASE MB INCREASED [None]
  - ELECTROCARDIOGRAM T WAVE INVERSION [None]
  - TREATMENT NONCOMPLIANCE [None]
  - VIRAL LOAD INCREASED [None]
